FAERS Safety Report 5360500-7 (Version None)
Quarter: 2007Q2

REPORT INFORMATION
  Report Type: 
  Country: None (occurrence: None)
  Receive Date: 20070618
  Receipt Date: 20070608
  Transmission Date: 20071010
  Serious: Yes (Hospitalization)
  Sender: FDA-Public Use
  Company Number: B0473282A

PATIENT
  Age: 73 Year
  Sex: Male
  Weight: 91.5 kg

DRUGS (8)
  1. ARIXTRA [Suspect]
     Dosage: 2.5MG PER DAY
     Route: 058
     Dates: start: 20070401, end: 20070523
  2. ALLOPURINOL [Concomitant]
     Route: 048
  3. ACETAMINOPHEN [Concomitant]
  4. TOPALGIC ( FRANCE ) [Concomitant]
  5. NEXIUM [Concomitant]
     Route: 048
  6. RENITEC [Concomitant]
     Dosage: 20MG PER DAY
     Route: 048
  7. DIAMICRON [Concomitant]
     Route: 048
  8. HEXAQUINE [Concomitant]
     Route: 048

REACTIONS (3)
  - ACTIVATED PARTIAL THROMBOPLASTIN TIME PROLONGED [None]
  - HAEMARTHROSIS [None]
  - PLATELET COUNT INCREASED [None]
